FAERS Safety Report 5624293-8 (Version None)
Quarter: 2008Q1

REPORT INFORMATION
  Report Type: 
  Country: None (occurrence: None)
  Receive Date: 20080206
  Receipt Date: 20080206
  Transmission Date: 20080703
  Serious: Yes (Other)
  Sender: FDA-Public Use
  Company Number: None

PATIENT
  Age: 29 Year
  Sex: Female
  Weight: 67.586 kg

DRUGS (2)
  1. ZOLOFT [Suspect]
     Indication: ANXIETY
     Dosage: 1 A DAY
     Dates: start: 20070401, end: 20070514
  2. ZOLOFT [Suspect]
     Indication: PANIC ATTACK
     Dosage: 1 A DAY
     Dates: start: 20070401, end: 20070514

REACTIONS (3)
  - ANXIETY [None]
  - ECONOMIC PROBLEM [None]
  - PHARMACEUTICAL PRODUCT COMPLAINT [None]
